FAERS Safety Report 21922765 (Version 1)
Quarter: 2023Q1

REPORT INFORMATION
  Report Type: Report from Study
  Country: MX (occurrence: MX)
  Receive Date: 20230128
  Receipt Date: 20230128
  Transmission Date: 20230418
  Serious: Yes (Other)
  Sender: FDA-Public Use
  Company Number: MX-002147023-NVSC2023MX019006

PATIENT
  Sex: Female

DRUGS (2)
  1. EXFORGE HCT [Suspect]
     Active Substance: AMLODIPINE BESYLATE\HYDROCHLOROTHIAZIDE\VALSARTAN
     Indication: Hypertension
     Dosage: 10/320/25 MG (STARTED 12 YEARS AGO)
     Route: 065
     Dates: start: 2011
  2. METFORMIN HYDROCHLORIDE\VILDAGLIPTIN [Suspect]
     Active Substance: METFORMIN HYDROCHLORIDE\VILDAGLIPTIN
     Indication: Diabetes mellitus
     Dosage: 50/1000 MG (STARTED 6 YEARS AGO APPROXIMATELY)
     Route: 065
     Dates: start: 2017

REACTIONS (6)
  - Suicide attempt [Unknown]
  - Depression [Recovering/Resolving]
  - Depressed mood [Not Recovered/Not Resolved]
  - Weight fluctuation [Not Recovered/Not Resolved]
  - Insomnia [Not Recovered/Not Resolved]
  - Crying [Not Recovered/Not Resolved]

NARRATIVE: CASE EVENT DATE: 20200101
